FAERS Safety Report 7999196-4 (Version None)
Quarter: 2011Q4

REPORT INFORMATION
  Report Type: 
  Country: None (occurrence: None)
  Receive Date: 20111221
  Receipt Date: 20111219
  Transmission Date: 20120403
  Serious: Yes (Death)
  Sender: FDA-Public Use
  Company Number: US-PFIZER INC-2011308952

PATIENT
  Age: 42 Year
  Sex: Female

DRUGS (3)
  1. CLONAZEPAM [Suspect]
  2. AMLODIPINE BESYLATE [Suspect]
  3. ETHANOL [Suspect]

REACTIONS (1)
  - COMPLETED SUICIDE [None]
